FAERS Safety Report 6929402-6 (Version None)
Quarter: 2010Q3

REPORT INFORMATION
  Report Type: 
  Country: None (occurrence: None)
  Receive Date: 20100818
  Receipt Date: 20100809
  Transmission Date: 20110219
  Serious: Yes (Hospitalization)
  Sender: FDA-Public Use
  Company Number: US-BIOGENIDEC-2008BI028412

PATIENT
  Age: 58 Year
  Sex: Female

DRUGS (2)
  1. AVONEX [Suspect]
     Indication: MULTIPLE SCLEROSIS
     Route: 030
     Dates: start: 20090101
  2. AVONEX [Suspect]
     Route: 030
     Dates: start: 20061030, end: 20080101

REACTIONS (8)
  - CELLULITIS [None]
  - INFECTION [None]
  - INTERVERTEBRAL DISC PROTRUSION [None]
  - LETHARGY [None]
  - NERVE COMPRESSION [None]
  - POSTOPERATIVE WOUND INFECTION [None]
  - PROCEDURAL PAIN [None]
  - WOUND INFECTION STAPHYLOCOCCAL [None]
